FAERS Safety Report 12838625 (Version 1)
Quarter: 2016Q4

REPORT INFORMATION
  Report Type: Spontaneous
  Country: US (occurrence: US)
  Receive Date: 20161012
  Receipt Date: 20161012
  Transmission Date: 20170207
  Serious: Yes (Other)
  Sender: FDA-Public Use
  Company Number: US-PROCTER_AND_GAMBLE-GS16100724

PATIENT
  Age: 54 Year
  Sex: Male
  Weight: 82.54 kg

DRUGS (6)
  1. OLDSPICEMALEHAIRSTYLINGBASESPIFFYPOMADE75G [Suspect]
     Active Substance: COSMETICS
     Dosage: AVERAGE AMOUNT ONCE
     Route: 061
     Dates: start: 20160808, end: 20160808
  2. OLD SPICE HIGH ENDURANCE PURE SPORT [Suspect]
     Active Substance: ALUMINUM CHLOROHYDRATE\ALUMINUM ZIRCONIUM TRICHLOROHYDREX GLY
     Dosage: AVERAGE AMOUNT ONCE
     Route: 061
     Dates: start: 20160808, end: 20160808
  3. SIMVASTATIN. [Concomitant]
     Active Substance: SIMVASTATIN
  4. ALLEGRA                            /01314201/ [Concomitant]
  5. AMLODIPINE BESYLATE. [Concomitant]
     Active Substance: AMLODIPINE BESYLATE
  6. NORVASC [Concomitant]
     Active Substance: AMLODIPINE BESYLATE

REACTIONS (7)
  - Swollen tongue [Recovered/Resolved]
  - Tongue discolouration [Recovered/Resolved]
  - Product difficult to remove [Unknown]
  - Hypersensitivity [Recovered/Resolved]
  - Pharyngeal hypoaesthesia [Recovered/Resolved]
  - Dysgeusia [Recovered/Resolved]
  - Hypoaesthesia oral [Recovered/Resolved]

NARRATIVE: CASE EVENT DATE: 20160808
